FAERS Safety Report 23081388 (Version 1)
Quarter: 2023Q4

REPORT INFORMATION
  Report Type: Spontaneous
  Country: CN (occurrence: CN)
  Receive Date: 20231018
  Receipt Date: 20231018
  Transmission Date: 20240110
  Serious: Yes (Other)
  Sender: FDA-Public Use
  Company Number: None

PATIENT
  Age: 72 Year
  Sex: Female

DRUGS (2)
  1. MANNITOL [Suspect]
     Active Substance: MANNITOL
     Indication: Spondylolisthesis
     Dosage: 250 ML (MILLILITRE), TWICE DAILY (DOSAGE FORM: INJECTION)
     Route: 041
     Dates: start: 20230914, end: 20230919
  2. MANNITOL [Suspect]
     Active Substance: MANNITOL
     Indication: Swelling

REACTIONS (2)
  - Electrolyte imbalance [Recovering/Resolving]
  - Nausea [Unknown]

NARRATIVE: CASE EVENT DATE: 20230917
